FAERS Safety Report 7152058-7 (Version None)
Quarter: 2010Q4

REPORT INFORMATION
  Report Type: 
  Country: None (occurrence: None)
  Receive Date: 20101212
  Receipt Date: 20101208
  Transmission Date: 20110411
  Serious: Yes (Other)
  Sender: FDA-Public Use
  Company Number: RU-BAYER-2010-003117

PATIENT
  Age: 75 Year
  Sex: Female

DRUGS (7)
  1. ASPIRIN [Suspect]
     Indication: THROMBOSIS PROPHYLAXIS
     Dosage: 125 MG, QD
     Route: 048
     Dates: start: 20101201, end: 20101201
  2. ENALAPRIL [Concomitant]
     Indication: BLOOD PRESSURE DECREASED
  3. CAVINTON [Concomitant]
     Dosage: 10 MG, TID
  4. CURANTYL [Concomitant]
     Dosage: 25 MG, TID
  5. UNCODEABLE ^UNCLASSIFIABLE^ [Concomitant]
     Dosage: 30 MG, UNK
  6. GLIATILIN [Concomitant]
     Dosage: 400 MG, TID
  7. MILGAMMA [Concomitant]
     Dosage: UNK
     Dates: start: 20090101

REACTIONS (6)
  - CONTUSION [None]
  - ERUCTATION [None]
  - ERYTHEMA MULTIFORME [None]
  - JOINT SWELLING [None]
  - OEDEMA PERIPHERAL [None]
  - SKIN REACTION [None]
